FAERS Safety Report 12920729 (Version 1)
Quarter: 2016Q4

REPORT INFORMATION
  Report Type: Spontaneous
  Country: US (occurrence: US)
  Receive Date: 20161108
  Receipt Date: 20161108
  Transmission Date: 20170207
  Serious: Yes (Hospitalization)
  Sender: FDA-Public Use
  Company Number: US-ASTELLAS-2016US043328

PATIENT
  Age: 46 Year
  Sex: Male

DRUGS (6)
  1. MYCOPHENOLATE MOFETIL. [Concomitant]
     Active Substance: MYCOPHENOLATE MOFETIL
     Indication: RENAL AND PANCREAS TRANSPLANT
     Route: 065
  2. PREDNISONE. [Concomitant]
     Active Substance: PREDNISONE
     Indication: RENAL TRANSPLANT
  3. TACROLIMUS. [Suspect]
     Active Substance: TACROLIMUS
     Indication: RENAL AND PANCREAS TRANSPLANT
     Route: 065
  4. PREDNISONE. [Concomitant]
     Active Substance: PREDNISONE
     Indication: RENAL AND PANCREAS TRANSPLANT
     Route: 065
  5. MYCOPHENOLATE MOFETIL. [Concomitant]
     Active Substance: MYCOPHENOLATE MOFETIL
     Indication: RENAL TRANSPLANT
  6. TACROLIMUS. [Suspect]
     Active Substance: TACROLIMUS
     Indication: RENAL TRANSPLANT

REACTIONS (13)
  - Neutropenia [Unknown]
  - Pancreatic necrosis [Unknown]
  - Renal ischaemia [Unknown]
  - Escherichia infection [Unknown]
  - Rectal haemorrhage [Recovered/Resolved]
  - Abdominal abscess [Unknown]
  - Infective aneurysm [Unknown]
  - Pulse absent [Unknown]
  - CT hypotension complex [Unknown]
  - Off label use [Unknown]
  - Chronic allograft nephropathy [Unknown]
  - Arterial haemorrhage [Unknown]
  - Candida infection [Unknown]

NARRATIVE: CASE EVENT DATE: 201110
